FAERS Safety Report 9852666 (Version 2)
Quarter: 2014Q1

REPORT INFORMATION
  Report Type: Spontaneous
  Country: US (occurrence: US)
  Receive Date: 20140129
  Receipt Date: 20140129
  Transmission Date: 20141002
  Serious: Yes (Other)
  Sender: FDA-Public Use
  Company Number: US-PFIZER INC-2012151949

PATIENT
  Age: 29 Year
  Sex: Female

DRUGS (2)
  1. MORPHINE SULFATE [Suspect]
     Dosage: UNK
  2. OXYCONTIN [Suspect]
     Dosage: UNK

REACTIONS (3)
  - Drug abuse [Unknown]
  - Road traffic accident [Unknown]
  - Impaired driving ability [Unknown]
